FAERS Safety Report 18808907 (Version 1)
Quarter: 2021Q1

REPORT INFORMATION
  Report Type: Other
  Country: US (occurrence: US)
  Receive Date: 20210129
  Receipt Date: 20210129
  Transmission Date: 20210419
  Serious: No
  Sender: FDA-Public Use
  Company Number: US-AMAG PHARMACEUTICALS, INC.-AMAG202004482

PATIENT
  Age: 30 Year
  Sex: Female
  Weight: 58.11 kg

DRUGS (1)
  1. MAKENA [Suspect]
     Active Substance: HYDROXYPROGESTERONE CAPROATE
     Indication: PREMATURE DELIVERY
     Dosage: 275MG/1.1ML
     Route: 058

REACTIONS (3)
  - Injection site pain [Unknown]
  - Injection site rash [Unknown]
  - Product administered at inappropriate site [Unknown]
